FAERS Safety Report 5699931-4 (Version None)
Quarter: 2008Q2

REPORT INFORMATION
  Report Type: 
  Country: None (occurrence: None)
  Receive Date: 20080410
  Receipt Date: 20080403
  Transmission Date: 20081010
  Serious: Yes (Other)
  Sender: FDA-Public Use
  Company Number: US-MERCK-0706USA00927

PATIENT
  Age: 69 Year
  Sex: Female
  Weight: 106 kg

DRUGS (3)
  1. FOSAMAX [Suspect]
     Indication: SPINAL OSTEOARTHRITIS
     Route: 048
     Dates: start: 20020820, end: 20060601
  2. FOSAMAX [Suspect]
     Indication: LUMBAR RADICULOPATHY
     Route: 048
     Dates: start: 20020820, end: 20060601
  3. [THERAPY UNSPECIFIED] [Concomitant]
     Indication: HYPERTENSION
     Route: 065

REACTIONS (17)
  - FACIAL BONES FRACTURE [None]
  - HEPATITIS C [None]
  - HERPES ZOSTER [None]
  - HYPERTENSION [None]
  - HYPOTHYROIDISM [None]
  - INTERVERTEBRAL DISC DISORDER [None]
  - LOOSE TOOTH [None]
  - OSTEONECROSIS [None]
  - OSTEOPOROSIS [None]
  - PAIN [None]
  - PAIN IN EXTREMITY [None]
  - PROTEINURIA [None]
  - RESORPTION BONE INCREASED [None]
  - SYNCOPE [None]
  - THYROID DISORDER [None]
  - TOOTH LOSS [None]
  - UPPER RESPIRATORY TRACT INFECTION [None]
